FAERS Safety Report 14298485 (Version 3)
Quarter: 2018Q2

REPORT INFORMATION
  Report Type: Spontaneous
  Country: US (occurrence: US)
  Receive Date: 20171218
  Receipt Date: 20180426
  Transmission Date: 20180711
  Serious: Yes (Death, Hospitalization)
  Sender: FDA-Public Use
  Company Number: US-ACTELION-A-US2017-163997

PATIENT
  Age: 50 Year
  Sex: Female

DRUGS (3)
  1. TRACLEER [Suspect]
     Active Substance: BOSENTAN
     Indication: PULMONARY ARTERIAL HYPERTENSION
     Dosage: 125 MG, BID
     Route: 048
     Dates: start: 2008, end: 20171205
  2. SILDENAFIL. [Concomitant]
     Active Substance: SILDENAFIL
     Dosage: 40 UNK, TID
  3. REMODULIN [Concomitant]
     Active Substance: TREPROSTINIL
     Dosage: 95 NG/KG, PER MIN

REACTIONS (5)
  - Disease progression [Fatal]
  - Pulmonary arterial hypertension [Fatal]
  - Dyspnoea [Fatal]
  - Chest pain [Unknown]
  - Right ventricular failure [Fatal]
